FAERS Safety Report 6979082 (Version 3)
Quarter: 2013Q4

REPORT INFORMATION
  Report Type: Spontaneous
  Country: US (occurrence: None)
  Receive Date: 20090417
  Receipt Date: 20131108
  Transmission Date: 20140711
  Serious: Yes (Hospitalization, Other)
  Sender: FDA-Public Use
  Company Number: 2009S1005860

PATIENT
  Age: 66 Year
  Sex: Female
  Weight: 76.66 kg

DRUGS (12)
  1. SODIUM PHOSPHATE [Suspect]
     Indication: COLONOSCOPY
     Dosage: ; PO
     Route: 048
     Dates: start: 20080709
  2. LECITHIN [Concomitant]
  3. PLETAL (CILOSTAZOL) (100 MILLIGRAM, TABLET) [Concomitant]
  4. LIPITOR  (ATORVASTATIN CALCIUM)(10 MILLIGRAM, TABLETS ) [Concomitant]
  5. GLUCOSAMINE (GLUCOSAMINE) (1500 MILLIGRAM) [Concomitant]
  6. METFORMIN XR (METFORMIN HYDROCHLORIDE) (500 TABLET) [Concomitant]
  7. ACIPHEX (RABEPRAZOLE  SODIUM) (20 MILLIGRAM, TABLET) [Concomitant]
  8. DIOVAN/HCT  (HYDROCHLOROTHIAZIDE, VALSARTAN) (TABLET) [Concomitant]
  9. ACTOS (PIOGLOTAZONE HYDROCHLORIDE) (15 MILLIGRAM TABLET) [Concomitant]
  10. MULTIVITAMIN (VITAMINS, NOS) (TABLET) [Concomitant]
  11. METOPROLOL ER (METOPROLOL) (100 MILLIGRAM, TABLET) [Concomitant]
  12. PLAVIX (CLOPIDOGREL BISULFATE) (75 MILLIGRAM, TABLET) [Concomitant]

REACTIONS (8)
  - Renal failure chronic [None]
  - Diarrhoea [None]
  - Fatigue [None]
  - Nausea [None]
  - Vomiting [None]
  - Chills [None]
  - Renal failure acute [None]
  - Hypovolaemia [None]
